FAERS Safety Report 9407541 (Version 6)
Quarter: 2013Q4

REPORT INFORMATION
  Report Type: Report from Study
  Country: BE (occurrence: BE)
  Receive Date: 20130718
  Receipt Date: 20131004
  Transmission Date: 20140711
  Serious: Yes (Death, Hospitalization, Other)
  Sender: FDA-Public Use
  Company Number: BE-BAYER-2013-015894

PATIENT
  Sex: Female

DRUGS (5)
  1. NEXAVAR [Suspect]
     Indication: ACUTE MYELOID LEUKAEMIA
     Dosage: 800 MG, QD
     Route: 048
     Dates: start: 20121121, end: 20130920
  2. ACICLOVIR [Concomitant]
  3. AMOXICILLINE [Concomitant]
     Dosage: UNK
  4. BACTRIM-FORTE [Concomitant]
     Dosage: UNK
  5. PROGRAFT [Concomitant]

REACTIONS (24)
  - Gastroenteritis [None]
  - General physical health deterioration [None]
  - Diarrhoea [None]
  - Nausea [None]
  - Vomiting [None]
  - Diarrhoea [None]
  - Nausea [None]
  - Vomiting [None]
  - Weight decreased [None]
  - Gastrointestinal haemorrhage [None]
  - Platelet count decreased [Recovering/Resolving]
  - Rash [None]
  - Off label use [None]
  - Decreased appetite [None]
  - Fatigue [None]
  - Oral pain [None]
  - Skin reaction [None]
  - Graft versus host disease [None]
  - Gastrointestinal disorder [None]
  - Skin disorder [None]
  - Diarrhoea [None]
  - Weight decreased [None]
  - Nausea [None]
  - Leukaemia recurrent [Fatal]
